FAERS Safety Report 23560795 (Version 2)
Quarter: 2024Q1

REPORT INFORMATION
  Report Type: Spontaneous
  Country: GB (occurrence: GB)
  Receive Date: 20240223
  Receipt Date: 20240228
  Transmission Date: 20240410
  Serious: Yes (Hospitalization, Other)
  Sender: FDA-Public Use
  Company Number: GB-002147023-NVSC2024GB037411

PATIENT
  Age: 32 Year
  Sex: Female

DRUGS (4)
  1. TEGRETOL [Suspect]
     Active Substance: CARBAMAZEPINE
     Indication: Epilepsy
     Dosage: 200 MG, QD (IN THE MORNING)
     Route: 065
  2. TEGRETOL [Suspect]
     Active Substance: CARBAMAZEPINE
     Dosage: 200 MG, BID (IN THE EVENING AND AT NIGHT)
     Route: 065
  3. TEGRETOL [Suspect]
     Active Substance: CARBAMAZEPINE
     Indication: Epilepsy
     Dosage: 400 MG, QD (IN THE NIGHT)
     Route: 065
  4. TEGRETOL [Suspect]
     Active Substance: CARBAMAZEPINE
     Indication: Epilepsy
     Dosage: UNK UNK, BID (100MG IN THE MORNING, 100MG AT LUNCH)
     Route: 065

REACTIONS (8)
  - Epilepsy [Unknown]
  - Skin injury [Unknown]
  - Fracture [Unknown]
  - Fall [Unknown]
  - Drug ineffective [Unknown]
  - Speech disorder [Unknown]
  - Product availability issue [Unknown]
  - Drug intolerance [Unknown]
